FAERS Safety Report 11136136 (Version 1)
Quarter: 2015Q2

REPORT INFORMATION
  Report Type: Spontaneous
  Country: US (occurrence: US)
  Receive Date: 20150526
  Receipt Date: 20150526
  Transmission Date: 20150821
  Serious: No
  Sender: FDA-Public Use
  Company Number: US-MALLINCKRODT-T201501753

PATIENT
  Age: 68 Year
  Sex: Female

DRUGS (1)
  1. H.P. ACTHAR [Suspect]
     Active Substance: CORTICOTROPIN
     Indication: PROTEINURIA
     Dosage: 40 U, BIWEEKLY
     Route: 058
     Dates: start: 20140807

REACTIONS (2)
  - Pain in extremity [Unknown]
  - Ankle fracture [Unknown]

NARRATIVE: CASE EVENT DATE: 20150312
